FAERS Safety Report 5318398-9 (Version None)
Quarter: 2007Q2

REPORT INFORMATION
  Report Type: 
  Country: None (occurrence: None)
  Receive Date: 20070501
  Receipt Date: 20070427
  Transmission Date: 20071010
  Serious: Yes (Hospitalization)
  Sender: FDA-Public Use
  Company Number: TCI2007A02154

PATIENT
  Age: 57 Year
  Sex: Male

DRUGS (3)
  1. ACTOS [Suspect]
     Indication: DIABETES MELLITUS
     Dosage: 15 MG (15 MG, 1 D) PER ORAL
     Route: 048
     Dates: start: 20060801, end: 20070426
  2. GLUCOBAY [Concomitant]
  3. NORVASC [Concomitant]

REACTIONS (1)
  - ATRIAL FIBRILLATION [None]
